FAERS Safety Report 21139984 (Version 2)
Quarter: 2022Q3

REPORT INFORMATION
  Report Type: Spontaneous
  Country: FR (occurrence: FR)
  Receive Date: 20220728
  Receipt Date: 20220805
  Transmission Date: 20221027
  Serious: Yes (Other)
  Sender: FDA-Public Use
  Company Number: None

PATIENT
  Age: 37 Year
  Sex: Male

DRUGS (10)
  1. PROPRANOLOL [Suspect]
     Active Substance: PROPRANOLOL HYDROCHLORIDE
     Indication: Product used for unknown indication
     Route: 065
  2. DIAZEPAM [Suspect]
     Active Substance: DIAZEPAM
     Indication: Product used for unknown indication
     Dosage: 30 MILLIGRAM DAILY; 30 MG/D
     Route: 065
  3. COCAINE [Suspect]
     Active Substance: COCAINE
     Indication: Product used for unknown indication
     Dosage: 5-6 G/D , DURATION : 23 YEARS
     Route: 065
  4. COCAINE [Suspect]
     Active Substance: COCAINE
     Dosage: 5-6 G/D , DURATION : 23 YEARS
     Route: 065
  5. COCAINE [Suspect]
     Active Substance: COCAINE
     Dosage: 5-6 G/D , DURATION : 23 YEARS
     Route: 065
  6. CANNABIS SATIVA SUBSP. INDICA TOP [Suspect]
     Active Substance: CANNABIS SATIVA SUBSP. INDICA TOP
     Indication: Product used for unknown indication
     Dosage: 5-6 JOINTS/DAY
     Route: 065
  7. ALCOHOL [Suspect]
     Active Substance: ALCOHOL
     Indication: Product used for unknown indication
     Dosage: 6 LITERS OF BEER + 1 LITER OF MUSCAT , DURATION : 23 YEARS
     Route: 065
  8. HEROIN [Suspect]
     Active Substance: DIAMORPHINE
     Indication: Product used for unknown indication
     Dosage: 2-3 G/D , DURATION : 23 YEARS
     Route: 065
  9. HEROIN [Suspect]
     Active Substance: DIAMORPHINE
     Dosage: 2-3 G/D , DURATION : 23 YEARS
     Route: 065
  10. HEROIN [Suspect]
     Active Substance: DIAMORPHINE
     Dosage: 2-3 G/D , DURATION : 23 YEARS
     Route: 065

REACTIONS (2)
  - Substance use disorder [Not Recovered/Not Resolved]
  - Overdose [Unknown]
